FAERS Safety Report 13449662 (Version 1)
Quarter: 2017Q2

REPORT INFORMATION
  Report Type: Spontaneous
  Country: US (occurrence: US)
  Receive Date: 20170417
  Receipt Date: 20170417
  Transmission Date: 20170830
  Serious: No
  Sender: FDA-Public Use
  Company Number: GXBR2016US003548

PATIENT
  Sex: Male
  Weight: 72.56 kg

DRUGS (2)
  1. NORCO [Concomitant]
     Active Substance: ACETAMINOPHEN\HYDROCODONE BITARTRATE
     Indication: ARTHRITIS
     Dosage: UNK DF, UNK
  2. DIPHENHYDRAMINE HCL CAPSULES USP [Suspect]
     Active Substance: DIPHENHYDRAMINE HYDROCHLORIDE
     Indication: COELIAC DISEASE
     Dosage: 25 MG, 4-6 CAPSULES A DAY
     Route: 065

REACTIONS (1)
  - Diarrhoea [Not Recovered/Not Resolved]
